FAERS Safety Report 11026015 (Version 1)
Quarter: 2015Q2

REPORT INFORMATION
  Report Type: Spontaneous
  Country: US (occurrence: None)
  Receive Date: 20150413
  Receipt Date: 20150413
  Transmission Date: 20150821
  Serious: No
  Sender: FDA-Public Use
  Company Number: None

PATIENT
  Age: 66 Year
  Sex: Female

DRUGS (1)
  1. TARCEVA [Suspect]
     Active Substance: ERLOTINIB HYDROCHLORIDE
     Indication: NEOPLASM MALIGNANT
     Dosage: 1 TAB, QD, ORAL
     Route: 048
     Dates: start: 20140924, end: 20150410

REACTIONS (2)
  - Diaphragmalgia [None]
  - Fatigue [None]

NARRATIVE: CASE EVENT DATE: 20150321
